FAERS Safety Report 9660083 (Version 2)
Quarter: 2013Q4

REPORT INFORMATION
  Report Type: Spontaneous
  Country: CL (occurrence: CL)
  Receive Date: 20131031
  Receipt Date: 20131106
  Transmission Date: 20140711
  Serious: Yes (Other)
  Sender: FDA-Public Use
  Company Number: CL-JNJFOC-20131017187

PATIENT
  Age: 64 Year
  Sex: Female
  Weight: 52 kg

DRUGS (7)
  1. SIMPONI [Suspect]
     Indication: PSORIATIC ARTHROPATHY
     Route: 058
     Dates: start: 20130724, end: 201310
  2. EUTHYROX [Concomitant]
     Route: 065
  3. MEDROL [Concomitant]
     Route: 065
  4. PARACETAMOL [Concomitant]
     Route: 065
  5. ESOMEPRAZOLE [Concomitant]
     Route: 065
  6. DICLOFENAC [Concomitant]
     Route: 065
  7. FOLIC ACID [Concomitant]
     Route: 065

REACTIONS (4)
  - Psoriasis [Not Recovered/Not Resolved]
  - Blood triglycerides increased [Unknown]
  - Weight decreased [Not Recovered/Not Resolved]
  - Abdominal pain upper [Not Recovered/Not Resolved]
